FAERS Safety Report 7978472-5 (Version None)
Quarter: 2011Q4

REPORT INFORMATION
  Report Type: 
  Country: None (occurrence: None)
  Receive Date: 20111214
  Receipt Date: 20111201
  Transmission Date: 20120403
  Serious: Yes (Other)
  Sender: FDA-Public Use
  Company Number: US-ELI_LILLY_AND_COMPANY-US201108004573

PATIENT
  Age: 57 Year
  Sex: Female

DRUGS (8)
  1. ACETAMINOPHEN [Concomitant]
  2. RISPERDAL [Concomitant]
  3. SERZONE [Concomitant]
     Indication: ANTIDEPRESSANT THERAPY
  4. NEURONTIN [Concomitant]
  5. ZYPREXA [Suspect]
     Indication: SCHIZOPHRENIA
     Dosage: UNK
     Dates: start: 20010101, end: 20110107
  6. CLONAZEPAM [Concomitant]
  7. DEPAKOTE [Concomitant]
  8. DARVOCET [Concomitant]

REACTIONS (40)
  - INSOMNIA [None]
  - VISUAL IMPAIRMENT [None]
  - FALL [None]
  - CONFUSIONAL STATE [None]
  - CONVULSION [None]
  - WEIGHT INCREASED [None]
  - DIARRHOEA [None]
  - MALAISE [None]
  - PLEURISY [None]
  - APHAGIA [None]
  - HYPOAESTHESIA [None]
  - INTENTIONAL DRUG MISUSE [None]
  - ASTHMA [None]
  - ALOPECIA [None]
  - IRRITABILITY [None]
  - WEIGHT DECREASED [None]
  - HYPERLIPIDAEMIA [None]
  - NERVOUSNESS [None]
  - RASH PRURITIC [None]
  - PAIN [None]
  - BLOOD CHOLESTEROL INCREASED [None]
  - PARAESTHESIA [None]
  - FATIGUE [None]
  - HYPERTHYROIDISM [None]
  - BLOOD COUNT ABNORMAL [None]
  - DERMATITIS ATOPIC [None]
  - MOOD SWINGS [None]
  - VOMITING [None]
  - TRANSIENT ISCHAEMIC ATTACK [None]
  - INTESTINAL OBSTRUCTION [None]
  - HYPOTENSION [None]
  - HYPERTENSION [None]
  - HEAD INJURY [None]
  - NAUSEA [None]
  - SUICIDAL IDEATION [None]
  - HYPERGLYCAEMIA [None]
  - DRUG WITHDRAWAL SYNDROME [None]
  - DYSPNOEA [None]
  - IMPULSIVE BEHAVIOUR [None]
  - URINARY RETENTION [None]
